FAERS Safety Report 9356747 (Version 4)
Quarter: 2013Q3

REPORT INFORMATION
  Report Type: Report from Study
  Country: BR (occurrence: BR)
  Receive Date: 20130619
  Receipt Date: 20130911
  Transmission Date: 20140515
  Serious: Yes (Other)
  Sender: FDA-Public Use
  Company Number: PHHY2013BR062370

PATIENT
  Sex: Male
  Weight: 88 kg

DRUGS (3)
  1. EXELON PATCH [Suspect]
     Indication: MEMORY IMPAIRMENT
     Dosage: 9.5 MG (PATCH 10 CM2), DAILY
     Route: 062
     Dates: end: 201307
  2. SERTRALINE [Suspect]
     Indication: MEMORY IMPAIRMENT
     Dosage: 1 DF, QD
  3. VITAMIN [Suspect]
     Dosage: UNK UKN, UNK

REACTIONS (6)
  - Fungal infection [Unknown]
  - Memory impairment [Unknown]
  - Drug ineffective [Unknown]
  - General physical health deterioration [Unknown]
  - Drug intolerance [Unknown]
  - Aggression [Unknown]
